FAERS Safety Report 15758006 (Version 7)
Quarter: 2022Q1

REPORT INFORMATION
  Report Type: Spontaneous
  Country: GB (occurrence: GB)
  Receive Date: 20181225
  Receipt Date: 20220209
  Transmission Date: 20220423
  Serious: Yes (Disabling, Other)
  Sender: FDA-Public Use
  Company Number: GB-AUROBINDO-AUR-APL-2018-060236

PATIENT
  Age: 52 Year
  Sex: Male

DRUGS (1)
  1. ENTECAVIR [Suspect]
     Active Substance: ENTECAVIR
     Indication: Acute hepatitis B
     Dosage: 0.5 MILLIGRAM, ONCE A DAY
     Route: 048
     Dates: start: 201707, end: 201708

REACTIONS (6)
  - Blindness unilateral [Recovered/Resolved]
  - Retinal toxicity [Recovered/Resolved]
  - Toxicity to various agents [Recovered/Resolved]
  - Retinal depigmentation [Recovered/Resolved]
  - Optic disc hyperaemia [Recovered/Resolved]
  - Visual field defect [Recovered/Resolved]

NARRATIVE: CASE EVENT DATE: 20170818
